FAERS Safety Report 4497638-2 (Version None)
Quarter: 2004Q4

REPORT INFORMATION
  Report Type: 
  Country: None (occurrence: None)
  Receive Date: 20041110
  Receipt Date: 20041101
  Transmission Date: 20050328
  Serious: Yes (Other)
  Sender: FDA-Public Use
  Company Number: BR-BRISTOL-MYERS SQUIBB COMPANY-12757894

PATIENT
  Age: 41 Year
  Sex: Female

DRUGS (1)
  1. CAPTOPRIL [Suspect]
     Indication: HYPERTENSION
     Dosage: EVERY MORNING

REACTIONS (2)
  - CONJUNCTIVAL HYPERAEMIA [None]
  - SIALOADENITIS [None]
